FAERS Safety Report 4579890-8 (Version None)
Quarter: 2005Q1

REPORT INFORMATION
  Report Type: 
  Country: None (occurrence: None)
  Receive Date: 20050203
  Receipt Date: 20050120
  Transmission Date: 20050727
  Serious: Yes (Other)
  Sender: FDA-Public Use
  Company Number: US-SANOFISYNTHELABO-D01200500030

PATIENT
  Age: 55 Year
  Sex: Male
  Weight: 77.7 kg

DRUGS (6)
  1. RASBURICASE - SOLUTION - 0.2 MG/ KG [Suspect]
     Indication: HYPERURICAEMIA
     Dosage: H0.2 MG/KG QD -INTRAVENOUS NOS
     Route: 042
     Dates: start: 20041229, end: 20041230
  2. CYTARABINE [Concomitant]
  3. IDARUBICIN HCL [Concomitant]
  4. VALSARTAN [Concomitant]
  5. GRANISETRON [Concomitant]
  6. DEXAMETHASONE [Concomitant]

REACTIONS (4)
  - ANAEMIA [None]
  - HAEMOLYSIS [None]
  - HYPERBILIRUBINAEMIA [None]
  - PLATELET COUNT DECREASED [None]
